FAERS Safety Report 6238939-7 (Version None)
Quarter: 2009Q2

REPORT INFORMATION
  Report Type: 
  Country: None (occurrence: None)
  Receive Date: 20090622
  Receipt Date: 20090616
  Transmission Date: 20091009
  Serious: Yes (Death, Hospitalization)
  Sender: FDA-Public Use
  Company Number: IN-ELI_LILLY_AND_COMPANY-IN200906003648

PATIENT
  Age: 30 Year
  Sex: Female

DRUGS (1)
  1. XIGRIS [Suspect]
     Indication: DENGUE FEVER
     Dosage: UNK, UNK
     Route: 042
     Dates: start: 20090604, end: 20090608

REACTIONS (1)
  - DEATH [None]
